FAERS Safety Report 6173743-X (Version None)
Quarter: 2009Q2

REPORT INFORMATION
  Report Type: 
  Country: None (occurrence: None)
  Receive Date: 20090430
  Receipt Date: 20090428
  Transmission Date: 20091009
  Serious: Yes (Death, Other)
  Sender: FDA-Public Use
  Company Number: PHHY2008JP31682

PATIENT
  Age: 59 Year
  Sex: Male

DRUGS (8)
  1. NEORAL [Suspect]
     Indication: STEM CELL TRANSPLANT
     Dosage: 3 MG/KG/DAY
     Route: 048
  2. MYCOPHENOLATE MOFETIL [Suspect]
     Indication: STEM CELL TRANSPLANT
     Route: 048
  3. MYCOPHENOLATE MOFETIL [Suspect]
     Indication: PROPHYLAXIS AGAINST GRAFT VERSUS HOST DISEASE
  4. RADIOTHERAPY [Concomitant]
  5. NEUPOGEN [Concomitant]
  6. ARA-C [Concomitant]
  7. FLUDARABINE PHOSPHATE [Concomitant]
     Dosage: 180 MG/M^2
  8. BUSULFAN [Concomitant]
     Route: 042

REACTIONS (6)
  - DIFFUSE ALVEOLAR DAMAGE [None]
  - DYSPNOEA [None]
  - IDIOPATHIC PNEUMONIA SYNDROME [None]
  - MECHANICAL VENTILATION [None]
  - RESPIRATORY FAILURE [None]
  - VIRAL INFECTION [None]
